FAERS Safety Report 5257367-4 (Version None)
Quarter: 2007Q1

REPORT INFORMATION
  Report Type: 
  Country: None (occurrence: None)
  Receive Date: 20070307
  Receipt Date: 20070104
  Transmission Date: 20070707
  Serious: No
  Sender: FDA-Public Use
  Company Number: US-GLAXOSMITHKLINE-A0509259A

PATIENT
  Sex: Male

DRUGS (7)
  1. REQUIP [Suspect]
     Indication: PARKINSON'S DISEASE
     Dosage: 2MG UNKNOWN
     Route: 048
     Dates: start: 20040430
  2. NEURONTIN [Suspect]
     Dosage: 300MG UNKNOWN
     Route: 048
  3. SERZONE [Concomitant]
  4. PREVACID [Concomitant]
  5. BUSPAR [Concomitant]
  6. CARDURA [Concomitant]
  7. MAXZIDE [Concomitant]

REACTIONS (3)
  - DRUG INEFFECTIVE [None]
  - DYSKINESIA [None]
  - INSOMNIA [None]
